FAERS Safety Report 20535772 (Version 2)
Quarter: 2022Q2

REPORT INFORMATION
  Report Type: Spontaneous
  Country: US (occurrence: US)
  Receive Date: 20220302
  Receipt Date: 20220505
  Transmission Date: 20220721
  Serious: No
  Sender: FDA-Public Use
  Company Number: US-ROCHE-3009779

PATIENT
  Sex: Female

DRUGS (5)
  1. SUSVIMO [Suspect]
     Active Substance: RANIBIZUMAB
     Indication: Neovascular age-related macular degeneration
     Dosage: IMPLANT WAS FILLED WITH 100 MG/ML SUSVIMO
     Route: 042
     Dates: start: 20220121
  2. SUSVIMO [Suspect]
     Active Substance: RANIBIZUMAB
  3. SUSVIMO [Suspect]
     Active Substance: RANIBIZUMAB
  4. SUSVIMO [Suspect]
     Active Substance: RANIBIZUMAB
  5. SUSVIMO [Suspect]
     Active Substance: RANIBIZUMAB

REACTIONS (3)
  - Incision site erosion [Not Recovered/Not Resolved]
  - Procedural failure [Unknown]
  - Off label use [Unknown]

NARRATIVE: CASE EVENT DATE: 20220121
